FAERS Safety Report 10254369 (Version 1)
Quarter: 2014Q2

REPORT INFORMATION
  Report Type: Spontaneous
  Country: CH (occurrence: CH)
  Receive Date: 20140624
  Receipt Date: 20140624
  Transmission Date: 20141212
  Serious: No
  Sender: FDA-Public Use
  Company Number: CH-B.I. PHARMACEUTICALS,INC./RIDGEFIELD-2014-BI-27120DE

PATIENT
  Sex: Female

DRUGS (1)
  1. ANTISTAX [Suspect]
     Indication: VEIN DISORDER
     Route: 065

REACTIONS (2)
  - Urticaria [Unknown]
  - Rash [Unknown]
